FAERS Safety Report 18129032 (Version 1)
Quarter: 2020Q3

REPORT INFORMATION
  Report Type: Spontaneous
  Country: US (occurrence: US)
  Receive Date: 20200808
  Receipt Date: 20200808
  Transmission Date: 20201103
  Serious: Yes (Hospitalization)
  Sender: FDA-Public Use
  Company Number: None

PATIENT
  Age: 34 Year
  Sex: Female
  Weight: 60.75 kg

DRUGS (2)
  1. VITAMIN C [Concomitant]
     Active Substance: ASCORBIC ACID
  2. BLUMEN CLEAR ADVANCED HAND SANITIZER [Suspect]
     Active Substance: ALCOHOL
     Indication: COVID-19 PROPHYLAXIS
     Dosage: ?          QUANTITY:33.8 OUNCE(S);OTHER FREQUENCY:WHEN NEEDED;OTHER ROUTE:RUBBED INTO HANDS?
     Dates: start: 20200711, end: 20200711

REACTIONS (9)
  - Ligament sprain [None]
  - Hyperhidrosis [None]
  - Generalised tonic-clonic seizure [None]
  - Cyanosis [None]
  - Respiratory arrest [None]
  - Skin mass [None]
  - Head injury [None]
  - Swelling [None]
  - Confusional state [None]

NARRATIVE: CASE EVENT DATE: 20200711
